FAERS Safety Report 9503013 (Version 1)
Quarter: 2013Q1

REPORT INFORMATION
  Report Type: Spontaneous
  Country: US (occurrence: None)
  Receive Date: 20130131
  Receipt Date: 20130131
  Transmission Date: 20140127
  Serious: Yes (Other)
  Sender: FDA-Public Use
  Company Number: DSA_55162_2012

PATIENT
  Age: 55 Year
  Sex: Male

DRUGS (6)
  1. ENALAPRIL [Suspect]
     Indication: PRODUCT USED FOR UNKNOWN INDICATION
  2. METOPROLOL [Concomitant]
  3. OMEPRAZOLE [Concomitant]
  4. AMLODIPINE [Concomitant]
  5. ESCITALOPRAM [Concomitant]
  6. CLONAZEPAM [Concomitant]

REACTIONS (1)
  - Hypersensitivity [None]
